FAERS Safety Report 5799806-6 (Version None)
Quarter: 2008Q3

REPORT INFORMATION
  Report Type: 
  Country: None (occurrence: None)
  Receive Date: 20080702
  Receipt Date: 20080702
  Transmission Date: 20090109
  Serious: Yes (Other)
  Sender: FDA-Public Use
  Company Number: None

PATIENT
  Age: 62 Year
  Sex: Male

DRUGS (5)
  1. DIGITEK .25 MG [Suspect]
     Dosage: 1 QD
  2. ATENOLOL [Concomitant]
  3. LIPITOR [Concomitant]
  4. COZAAR [Concomitant]
  5. GEMFIBROZIL [Concomitant]

REACTIONS (2)
  - PALPITATIONS [None]
  - PHARMACEUTICAL PRODUCT COMPLAINT [None]
